FAERS Safety Report 8085416-7 (Version None)
Quarter: 2012Q1

REPORT INFORMATION
  Report Type: 
  Country: None (occurrence: None)
  Receive Date: 20120128
  Receipt Date: 20110426
  Transmission Date: 20120608
  Serious: Yes (Other)
  Sender: FDA-Public Use
  Company Number: US-ABBOTT-11P-163-0700531-00

PATIENT
  Sex: Male
  Weight: 109.41 kg

DRUGS (3)
  1. ENTOCORT EC [Concomitant]
     Indication: PRODUCT USED FOR UNKNOWN INDICATION
     Dates: start: 20100607
  2. IMURAN [Concomitant]
     Indication: PRODUCT USED FOR UNKNOWN INDICATION
     Dates: start: 20081101
  3. HUMIRA [Suspect]
     Indication: CROHN'S DISEASE
     Dates: start: 20081101

REACTIONS (1)
  - TESTIS CANCER [None]
